FAERS Safety Report 19437672 (Version 1)
Quarter: 2021Q2

REPORT INFORMATION
  Report Type: Report from Study
  Country: US (occurrence: US)
  Receive Date: 20210618
  Receipt Date: 20210618
  Transmission Date: 20210717
  Serious: Yes (Hospitalization, Other)
  Sender: FDA-Public Use
  Company Number: US-BAYER-2020-284524

PATIENT
  Age: 52 Year
  Sex: Male

DRUGS (4)
  1. STIVARGA [Suspect]
     Active Substance: REGORAFENIB
     Indication: COLON CANCER
     Dosage: 80 MG, QD FOR 21 DAYS ON, 7 DAYS OFF EVERY 28 DAYS
     Route: 048
     Dates: start: 20201130
  2. STIVARGA [Suspect]
     Active Substance: REGORAFENIB
     Indication: COLON CANCER
     Dosage: 120 MG, QD
     Route: 048
     Dates: start: 202102
  3. PROCHLORPERAZINE. [Concomitant]
     Active Substance: PROCHLORPERAZINE
     Dosage: 10 MG, QID
  4. STIVARGA [Suspect]
     Active Substance: REGORAFENIB
     Indication: COLON CANCER
     Dosage: 80 MG, QD FOR 21 DAYS ON,7 DAYS OFF, EVERY 28 DAYS
     Route: 048
     Dates: start: 20201123

REACTIONS (4)
  - Paraesthesia [Unknown]
  - Blood disorder [Unknown]
  - Off label use [None]
  - Medical procedure [Unknown]

NARRATIVE: CASE EVENT DATE: 202105
